FAERS Safety Report 7379637-6 (Version None)
Quarter: 2011Q1

REPORT INFORMATION
  Report Type: 
  Country: None (occurrence: None)
  Receive Date: 20110318
  Receipt Date: 20110309
  Transmission Date: 20110831
  Serious: Yes (Other)
  Sender: FDA-Public Use
  Company Number: 029057

PATIENT
  Sex: Female
  Weight: 99.8 kg

DRUGS (12)
  1. VITAMIN B12 /00056201/ [Concomitant]
  2. CLOBETASOL PROPIONATE [Concomitant]
  3. SEROQUEL [Concomitant]
  4. CLEMASTINE FUMARATE [Concomitant]
  5. KLONOPIN [Concomitant]
  6. HYDROCODONE BITARTRATE [Concomitant]
  7. LEXAPRO [Concomitant]
  8. CIMZIA [Suspect]
     Indication: CROHN'S DISEASE
     Dosage: (SUBCUTANEOUS)
     Route: 058
     Dates: start: 20110301
  9. BUPROPION HYDROCHLORIDE [Concomitant]
  10. PREVACID [Concomitant]
  11. VALACICLOVIR [Concomitant]
  12. VITAMINS /90003601/ [Concomitant]

REACTIONS (5)
  - FEELING ABNORMAL [None]
  - RASH [None]
  - BURNING SENSATION [None]
  - PRURITUS [None]
  - PARAESTHESIA [None]
